FAERS Safety Report 11676831 (Version 1)
Quarter: 2015Q4

REPORT INFORMATION
  Report Type: Spontaneous
  Country: US (occurrence: US)
  Receive Date: 20151027
  Receipt Date: 20151027
  Transmission Date: 20160304
  Serious: No
  Sender: FDA-Public Use
  Company Number: US-ELI_LILLY_AND_COMPANY-US201009003351

PATIENT
  Age: 77 Year
  Sex: Female

DRUGS (1)
  1. FORTEO [Suspect]
     Active Substance: TERIPARATIDE
     Indication: OSTEOPOROSIS
     Dosage: 20 UG, DAILY (1/D)
     Dates: start: 20100810

REACTIONS (9)
  - Fatigue [Unknown]
  - Feeling abnormal [Unknown]
  - Migraine [Recovering/Resolving]
  - Tongue dry [Unknown]
  - Tachycardia [Recovered/Resolved]
  - Feeling hot [Unknown]
  - Flushing [Unknown]
  - Blood pressure increased [Unknown]
  - Thirst [Unknown]

NARRATIVE: CASE EVENT DATE: 201008
